APPROVED DRUG PRODUCT: TIROFIBAN HYDROCHLORIDE
Active Ingredient: TIROFIBAN HYDROCHLORIDE
Strength: EQ 5MG BASE/100ML (EQ 0.05MG BASE/ML)
Dosage Form/Route: SOLUTION;INTRAVENOUS
Application: A216379 | Product #001 | TE Code: AP
Applicant: EUGIA PHARMA SPECIALITIES LTD
Approved: May 1, 2023 | RLD: No | RS: No | Type: RX